FAERS Safety Report 8717780 (Version 2)
Quarter: 2018Q2

REPORT INFORMATION
  Report Type: Report from Study
  Country: US (occurrence: US)
  Receive Date: 20120810
  Receipt Date: 20180424
  Transmission Date: 20180711
  Serious: Yes (Death, Other)
  Sender: FDA-Public Use
  Company Number: US-GLAXOSMITHKLINE-B0821216A

PATIENT

DRUGS (15)
  1. GEMCITABINE [Suspect]
     Active Substance: GEMCITABINE\GEMCITABINE HYDROCHLORIDE
     Dosage: 75 MG/M2, UNK, ON DAYS -8 AND -3 ; CYCLICAL
     Route: 065
  2. BUSULPHAN [Suspect]
     Active Substance: BUSULFAN
     Indication: PRODUCT USED FOR UNKNOWN INDICATION
     Route: 042
  3. BUSULPHAN [Suspect]
     Active Substance: BUSULFAN
     Dosage: 32 MG/M2, UNK, TEST DOSE DURING THE PREADMISSION WEEK
     Route: 042
  4. MELPHALAN. [Suspect]
     Active Substance: MELPHALAN
     Indication: PRODUCT USED FOR UNKNOWN INDICATION
     Route: 042
  5. CRYOTHERAPY [Suspect]
     Active Substance: DEVICE
     Indication: PRODUCT USED FOR UNKNOWN INDICATION
     Route: 048
  6. DEXAMETHASONE. [Concomitant]
     Active Substance: DEXAMETHASONE
     Indication: SUPPORTIVE CARE
     Dosage: 8 MG, UNK, GIVEN TWICE DAILY FROM DAY -9 TO DAY -2 ; CYCLICAL
     Route: 042
  7. GEMCITABINE [Suspect]
     Active Substance: GEMCITABINE\GEMCITABINE HYDROCHLORIDE
     Dosage: 2700 MG/M2, UNK, OVER 3 HOURS AT 10 MG/M2/MINUTE ; CYCLICAL
     Route: 065
  8. BUSULPHAN [Suspect]
     Active Substance: BUSULFAN
     Dosage: 4000 ?M/MINUTE DAILY OVER 3 HOURS ON DAYS -8 TO -5 ; CYCLICAL
     Route: 065
  9. GEMCITABINE [Suspect]
     Active Substance: GEMCITABINE\GEMCITABINE HYDROCHLORIDE
     Indication: HODGKIN^S DISEASE
     Route: 042
  10. PHENYTOIN. [Suspect]
     Active Substance: PHENYTOIN
     Indication: SUPPORTIVE CARE
     Route: 048
  11. PALIFERMIN [Suspect]
     Active Substance: PALIFERMIN
     Indication: PROPHYLAXIS
  12. MAXIRAW PRIMARY GLUTAMINE [Suspect]
     Active Substance: GLUTAMINE
     Indication: PRODUCT USED FOR UNKNOWN INDICATION
     Route: 065
  13. PHENYTOIN. [Suspect]
     Active Substance: PHENYTOIN
     Dosage: 300 TO 600 MG/DAY WAS GIVEN FROM DAY -9 TO DAY -4 ; CYCLICAL   UNK
     Route: 065
  14. ARTIFICIAL SALIVA (DEVICE) [Suspect]
     Active Substance: DEVICE
     Indication: PROPHYLAXIS
     Route: 048
  15. GRANULOCYTE MACROPHAGE COLONY STIMULATING FACTOR [Suspect]
     Active Substance: GRANULOCYTE-MACROPHAGE COLONY-STIMULATING FACTOR
     Indication: PRODUCT USED FOR UNKNOWN INDICATION
     Route: 058

REACTIONS (3)
  - Mucosal inflammation [Unknown]
  - Candida infection [Fatal]
  - Sepsis [Fatal]
